FAERS Safety Report 10622842 (Version 2)
Quarter: 2014Q4

REPORT INFORMATION
  Report Type: Spontaneous
  Country: GB (occurrence: GB)
  Receive Date: 20141203
  Receipt Date: 20141203
  Transmission Date: 20150529
  Serious: Yes (Other)
  Sender: FDA-Public Use
  Company Number: GB-BAYER-2014-170734

PATIENT
  Age: 70 Year
  Sex: Male

DRUGS (2)
  1. ADALAT [Suspect]
     Active Substance: NIFEDIPINE
     Indication: RAYNAUD^S PHENOMENON
     Dosage: 10 MG, BID
     Dates: start: 201406
  2. BICALUTAMIDE. [Concomitant]
     Active Substance: BICALUTAMIDE
     Dosage: 150 MG, QD
     Dates: start: 20141031

REACTIONS (3)
  - Therapeutic response unexpected [None]
  - Prostate cancer recurrent [None]
  - Product use issue [None]
